FAERS Safety Report 8564402-4 (Version None)
Quarter: 2012Q3

REPORT INFORMATION
  Report Type: 
  Country: None (occurrence: None)
  Receive Date: 20120727
  Receipt Date: 20120727
  Transmission Date: 20120928
  Serious: Yes (Hospitalization)
  Sender: FDA-Public Use
  Company Number: None

PATIENT
  Age: 55 Year
  Sex: Female
  Weight: 61.3263 kg

DRUGS (7)
  1. MINOCYCLINE HCL [Concomitant]
  2. OXYCODONE HCL [Concomitant]
  3. TACXOLIMUS CREAM [Concomitant]
  4. ERLOTINIB HYDROCHLORIDE [Suspect]
     Dosage: 50 MG QD PO
     Route: 048
     Dates: start: 20120222, end: 20120725
  5. CODEINE-GUNIFENESIN [Concomitant]
  6. DOSONIDO [Concomitant]
  7. HYDROQUINONE CREAM [Concomitant]

REACTIONS (5)
  - PYREXIA [None]
  - CHILLS [None]
  - ABDOMINAL PAIN [None]
  - HAEMATOCHEZIA [None]
  - COLITIS [None]
